FAERS Safety Report 7919729-3 (Version None)
Quarter: 2011Q4

REPORT INFORMATION
  Report Type: 
  Country: None (occurrence: None)
  Receive Date: 20111115
  Receipt Date: 20111010
  Transmission Date: 20120403
  Serious: Yes (Death)
  Sender: FDA-Public Use
  Company Number: KR-ACCORD-011248

PATIENT
  Age: 72 Year
  Sex: Male

DRUGS (4)
  1. DOXORUBICIN HCL [Suspect]
     Indication: CHEMOTHERAPY
  2. CISPLATIN [Suspect]
     Indication: CHEMOTHERAPY
  3. ETOPOSIDE [Suspect]
     Indication: CHEMOTHERAPY
  4. LYSODREN [Suspect]
     Indication: CHEMOTHERAPY

REACTIONS (5)
  - PNEUMONIA [None]
  - ADRENOCORTICAL CARCINOMA [None]
  - OPPORTUNISTIC INFECTION [None]
  - METASTASES TO ADRENALS [None]
  - CUSHING'S SYNDROME [None]
